FAERS Safety Report 4706170-X (Version None)
Quarter: 2005Q2

REPORT INFORMATION
  Report Type: 
  Country: None (occurrence: None)
  Receive Date: 20050629
  Receipt Date: 20050525
  Transmission Date: 20051028
  Serious: Yes (Death)
  Sender: FDA-Public Use
  Company Number: 05P-163-0285125-00

PATIENT
  Age: 92 Year
  Sex: Female
  Weight: 54.4316 kg

DRUGS (9)
  1. HUMIRA [Suspect]
     Indication: RHEUMATOID ARTHRITIS
     Dosage: 40 MG, 1 IN 2 WK, SUBCUTANEOUS
     Route: 058
     Dates: start: 20040101, end: 20041229
  2. PREDNISONE TAB [Concomitant]
  3. BUCINDOLOL HYDROCHLORIDE [Concomitant]
  4. VERAPAMIL [Concomitant]
  5. FUROSEMIDE [Concomitant]
  6. DIGOXIN [Concomitant]
  7. AZATHIOPRINE [Concomitant]
  8. COUMADIN [Concomitant]
  9. PAROXETINE HYDROCHLORIDE [Concomitant]

REACTIONS (1)
  - DEATH [None]
